APPROVED DRUG PRODUCT: VALSARTAN
Active Ingredient: VALSARTAN
Strength: 320MG
Dosage Form/Route: TABLET;ORAL
Application: A090642 | Product #004
Applicant: WATSON LABORATORIES INC
Approved: Jan 5, 2015 | RLD: No | RS: No | Type: DISCN